FAERS Safety Report 8977185 (Version 2)
Quarter: 2013Q2

REPORT INFORMATION
  Report Type: Spontaneous
  Country: US (occurrence: US)
  Receive Date: 20121220
  Receipt Date: 20130621
  Transmission Date: 20140414
  Serious: No
  Sender: FDA-Public Use
  Company Number: US-BIOGENIDEC-2012BI060275

PATIENT
  Sex: Female
  Weight: 69 kg

DRUGS (3)
  1. TYSABRI [Suspect]
     Indication: RELAPSING-REMITTING MULTIPLE SCLEROSIS
     Route: 042
     Dates: start: 20110915
  2. REQUIP [Concomitant]
     Indication: RESTLESS LEGS SYNDROME
  3. GABAPENTIN [Concomitant]
     Indication: RESTLESS LEGS SYNDROME

REACTIONS (6)
  - Hemiparesis [Unknown]
  - Balance disorder [Unknown]
  - Restless legs syndrome [Unknown]
  - Fatigue [Not Recovered/Not Resolved]
  - Pain [Not Recovered/Not Resolved]
  - Pain in extremity [Not Recovered/Not Resolved]
